FAERS Safety Report 16968588 (Version 1)
Quarter: 2019Q4

REPORT INFORMATION
  Report Type: Spontaneous
  Country: US (occurrence: US)
  Receive Date: 20191029
  Receipt Date: 20191029
  Transmission Date: 20200122
  Serious: Yes (Other)
  Sender: FDA-Public Use
  Company Number: US-GLAND PHARMA LIMITED-2076110

PATIENT
  Age: 71 Year
  Sex: Male

DRUGS (1)
  1. VANCOMYCIN HYDROCHLORIDE. [Suspect]
     Active Substance: VANCOMYCIN HYDROCHLORIDE
     Indication: STAPHYLOCOCCAL INFECTION
     Route: 042

REACTIONS (4)
  - Thrombocytopenia [Recovered/Resolved]
  - Petechiae [Unknown]
  - Gastrointestinal haemorrhage [Unknown]
  - Contusion [Unknown]
